FAERS Safety Report 8507220-5 (Version None)
Quarter: 2012Q3

REPORT INFORMATION
  Report Type: 
  Country: None (occurrence: None)
  Receive Date: 20120712
  Receipt Date: 20120704
  Transmission Date: 20120928
  Serious: Yes (Hospitalization)
  Sender: FDA-Public Use
  Company Number: GB-TEVA-342331USA

PATIENT
  Sex: Male

DRUGS (3)
  1. DEXAMETHASONE SODIUM POSPHATE [Suspect]
     Dates: start: 20120330
  2. TREANDA [Suspect]
     Dates: start: 20120330
  3. THALIDOMIDE [Suspect]
     Dates: start: 20120330

REACTIONS (1)
  - RESPIRATORY TRACT INFECTION [None]
